FAERS Safety Report 17307031 (Version 1)
Quarter: 2020Q1

REPORT INFORMATION
  Report Type: Spontaneous
  Country: US (occurrence: US)
  Receive Date: 20200123
  Receipt Date: 20200123
  Transmission Date: 20200409
  Serious: No
  Sender: FDA-Public Use
  Company Number: US-EAGLE PHARMACEUTICALS, INC.-US-2019EAG000036

PATIENT
  Age: 49 Year
  Sex: Female
  Weight: 60.32 kg

DRUGS (6)
  1. BENDEKA [Suspect]
     Active Substance: BENDAMUSTINE HYDROCHLORIDE
     Indication: NON-HODGKIN^S LYMPHOMA
     Dosage: CYCLE 1, DAYS 1 AND 2, UNK, INFUSED SLOWLY OVER COUPLE OF HOURS
     Route: 042
     Dates: start: 20190507
  2. GAZYVA [Concomitant]
     Active Substance: OBINUTUZUMAB
     Indication: B-CELL LYMPHOMA
     Dosage: CYCLE 1
     Route: 065
     Dates: start: 20190507
  3. BENDEKA [Suspect]
     Active Substance: BENDAMUSTINE HYDROCHLORIDE
     Indication: B-CELL LYMPHOMA
     Dosage: CYCLE 2, UNK, INFUSED OVER 20-30 MINUTES
     Route: 042
     Dates: start: 201906
  4. MARIJUANA [Concomitant]
     Active Substance: CANNABIS SATIVA SUBSP. INDICA TOP
     Indication: PRODUCT USED FOR UNKNOWN INDICATION
     Dosage: UNK
     Route: 065
  5. GAZYVA [Concomitant]
     Active Substance: OBINUTUZUMAB
     Indication: NON-HODGKIN^S LYMPHOMA
  6. BENDEKA [Suspect]
     Active Substance: BENDAMUSTINE HYDROCHLORIDE
     Dosage: CYCLE 3, DAYS 1 AND 2, UNK, DILUTED IN 500ML OF NS, INSFUSED SLOWLY
     Route: 042
     Dates: start: 20190702

REACTIONS (10)
  - Infusion site discolouration [Unknown]
  - Axillary web syndrome [Not Recovered/Not Resolved]
  - Infusion site scar [Unknown]
  - Incorrect drug administration rate [Unknown]
  - Chemical phlebitis [Unknown]
  - Infusion site pain [Unknown]
  - Skin striae [Not Recovered/Not Resolved]
  - Infusion site erythema [Not Recovered/Not Resolved]
  - Product preparation issue [Unknown]
  - Infusion site bruising [Not Recovered/Not Resolved]

NARRATIVE: CASE EVENT DATE: 2019
